FAERS Safety Report 7759443-0 (Version None)
Quarter: 2011Q3

REPORT INFORMATION
  Report Type: 
  Country: None (occurrence: None)
  Receive Date: 20110919
  Receipt Date: 20110909
  Transmission Date: 20111222
  Serious: Yes (Life-Threatening, Hospitalization)
  Sender: FDA-Public Use
  Company Number: US-CELGENEUS-163-21880-11050083

PATIENT
  Sex: Male
  Weight: 85.352 kg

DRUGS (15)
  1. M.V.I. [Concomitant]
     Route: 065
  2. ZOMETA [Concomitant]
     Route: 065
  3. REVLIMID [Suspect]
     Indication: MULTIPLE MYELOMA
     Dosage: 25 MILLIGRAM
     Route: 048
     Dates: start: 20100618, end: 20100712
  4. REVLIMID [Suspect]
     Dosage: 15 MILLIGRAM
     Route: 048
     Dates: start: 20110503
  5. CALTRATE + D [Concomitant]
     Route: 065
  6. DEXAMETHASONE [Concomitant]
     Route: 065
  7. OMEPRAZOLE [Concomitant]
     Route: 065
  8. OXYCODONE HCL [Concomitant]
     Route: 065
  9. ALLOPURINOL [Concomitant]
     Route: 065
  10. VELCADE [Concomitant]
     Route: 065
  11. COMPAZINE [Concomitant]
     Route: 065
  12. LORAZEPAM [Concomitant]
     Route: 065
  13. LISINOPRIL [Concomitant]
     Route: 065
  14. ASPIRIN [Concomitant]
     Dosage: 81 MILLIGRAM
     Route: 065
  15. LIPITOR [Concomitant]
     Route: 065

REACTIONS (1)
  - MYOCARDIAL INFARCTION [None]
